FAERS Safety Report 25594328 (Version 2)
Quarter: 2025Q3

REPORT INFORMATION
  Report Type: Report from Study
  Country: CA (occurrence: CA)
  Receive Date: 20250723
  Receipt Date: 20250805
  Transmission Date: 20251021
  Serious: Yes (Hospitalization, Other)
  Sender: Alvotech
  Company Number: CA-JAMP PHARMA CORPORATION-2025-JAM-CA-00010

PATIENT
  Age: 59 Year
  Sex: Female

DRUGS (2)
  1. SIMLANDI [Suspect]
     Active Substance: ADALIMUMAB-RYVK
     Indication: Rheumatoid arthritis
     Dosage: 40 MG, EVERY 2 WEEKS
     Route: 058
     Dates: start: 20250702
  2. SIMLANDI [Suspect]
     Active Substance: ADALIMUMAB-RYVK
     Indication: Rheumatoid arthritis
     Dosage: 40 MG, EVERY 2 WEEKS
     Route: 058
     Dates: start: 20241229

REACTIONS (32)
  - Umbilical hernia [Not Recovered/Not Resolved]
  - Pneumonia [Not Recovered/Not Resolved]
  - Infection [Not Recovered/Not Resolved]
  - Trichorrhexis [Not Recovered/Not Resolved]
  - Mood altered [Unknown]
  - Loose tooth [Not Recovered/Not Resolved]
  - Abdominal hernia [Unknown]
  - Toothache [Not Recovered/Not Resolved]
  - Increased upper airway secretion [Unknown]
  - Gingival bleeding [Not Recovered/Not Resolved]
  - Vulvovaginal burning sensation [Unknown]
  - Abdominal operation [Unknown]
  - Throat tightness [Unknown]
  - Eye irritation [Not Recovered/Not Resolved]
  - Gingival pain [Unknown]
  - Gait disturbance [Not Recovered/Not Resolved]
  - Abdominal distension [Unknown]
  - Abdominal pain lower [Not Recovered/Not Resolved]
  - Injection site pain [Not Recovered/Not Resolved]
  - Pyrexia [Unknown]
  - Alopecia [Not Recovered/Not Resolved]
  - Nausea [Unknown]
  - Abdominal pain [Not Recovered/Not Resolved]
  - Anxiety [Unknown]
  - Oedema [Recovering/Resolving]
  - Pain [Not Recovered/Not Resolved]
  - Infected bite [Recovering/Resolving]
  - Constipation [Not Recovered/Not Resolved]
  - Flatulence [Unknown]
  - Arthralgia [Recovering/Resolving]
  - Headache [Not Recovered/Not Resolved]
  - Joint swelling [Not Recovered/Not Resolved]

NARRATIVE: CASE EVENT DATE: 20250223
